FAERS Safety Report 8240584-9 (Version None)
Quarter: 2012Q1

REPORT INFORMATION
  Report Type: 
  Country: None (occurrence: None)
  Receive Date: 20120314
  Receipt Date: 20120203
  Transmission Date: 20120608
  Serious: Yes (Hospitalization)
  Sender: FDA-Public Use
  Company Number: PHEH2011US03975

PATIENT
  Age: 63 Year
  Sex: Male

DRUGS (5)
  1. MULTIVITAMINS (ASCORBIC ACID, ERGOCALCIFEROL, FOLIC ACID, NICOTINAMIDE [Concomitant]
  2. EXTAVIA [Suspect]
     Indication: MULTIPLE SCLEROSIS
     Dosage: 0.125 MG, QOD, SUBCUTANEOUS ; 0.1250 MG, QOD, SUBCUTANEOUS
     Route: 058
     Dates: start: 20110907, end: 20120111
  3. EXTAVIA [Suspect]
     Indication: MULTIPLE SCLEROSIS
     Dosage: 0.125 MG, QOD, SUBCUTANEOUS ; 0.1250 MG, QOD, SUBCUTANEOUS
     Route: 058
     Dates: start: 20120126
  4. LIDOCAINE [Concomitant]
  5. TEGRETOL [Concomitant]

REACTIONS (8)
  - PAIN [None]
  - HEADACHE [None]
  - NUCLEAR MAGNETIC RESONANCE IMAGING ABNORMAL [None]
  - PNEUMONIA [None]
  - FATIGUE [None]
  - MALAISE [None]
  - INJECTION SITE MASS [None]
  - INJECTION SITE PAIN [None]
